FAERS Safety Report 16059804 (Version 4)
Quarter: 2019Q2

REPORT INFORMATION
  Report Type: Report from Study
  Country: None (occurrence: AU)
  Receive Date: 20190311
  Receipt Date: 20190608
  Transmission Date: 20190711
  Serious: Yes (Other)
  Sender: FDA-Public Use
  Company Number: AU-ABBVIE-19S-008-2635879-00

PATIENT
  Age: 78 Year
  Sex: Male

DRUGS (2)
  1. LUCRIN DEPOT [Suspect]
     Active Substance: LEUPROLIDE ACETATE
     Indication: PROSTATE CANCER
     Route: 030
     Dates: start: 20170822
  2. DUODART [Concomitant]
     Active Substance: DUTASTERIDE\TAMSULOSIN
     Indication: PRODUCT USED FOR UNKNOWN INDICATION

REACTIONS (22)
  - Bone erosion [Not Recovered/Not Resolved]
  - Lung neoplasm malignant [Unknown]
  - Poor quality sleep [Not Recovered/Not Resolved]
  - Inflammation [Not Recovered/Not Resolved]
  - Pelvic pain [Unknown]
  - Hypotension [Recovering/Resolving]
  - Musculoskeletal disorder [Unknown]
  - Therapy partial responder [Unknown]
  - Nausea [Not Recovered/Not Resolved]
  - Hypotonia [Not Recovered/Not Resolved]
  - Treatment failure [Unknown]
  - Product prescribing error [Recovering/Resolving]
  - Pollakiuria [Not Recovered/Not Resolved]
  - Anxiety [Unknown]
  - Prostate cancer metastatic [Not Recovered/Not Resolved]
  - Pain [Not Recovered/Not Resolved]
  - Anaemia [Recovering/Resolving]
  - Haemorrhage [Unknown]
  - Panic attack [Recovered/Resolved]
  - Dyspnoea [Recovering/Resolving]
  - Middle insomnia [Recovered/Resolved]
  - Radiation injury [Recovering/Resolving]

NARRATIVE: CASE EVENT DATE: 201812
